FAERS Safety Report 15284634 (Version 1)
Quarter: 2018Q3

REPORT INFORMATION
  Report Type: Spontaneous
  Country: US (occurrence: US)
  Receive Date: 20180801
  Receipt Date: 20180801
  Transmission Date: 20181010
  Serious: Yes (Life-Threatening, Hospitalization)
  Sender: FDA-Public Use
  Company Number: None

PATIENT
  Age: 44 Year
  Sex: Female
  Weight: 117 kg

DRUGS (4)
  1. LOSINARPIL [Concomitant]
  2. SUMATRIPTAN TABLETS, USP [Suspect]
     Active Substance: SUMATRIPTAN
     Indication: MIGRAINE
     Dosage: 1 TABLET
     Route: 048
     Dates: start: 20180731, end: 20180731
  3. ATORVASTATIN [Concomitant]
     Active Substance: ATORVASTATIN
  4. METFORMIN [Concomitant]
     Active Substance: METFORMIN HYDROCHLORIDE

REACTIONS (10)
  - Blood pressure increased [None]
  - Palpitations [None]
  - Sensory loss [None]
  - Vomiting [None]
  - Blood pressure immeasurable [None]
  - Pulse absent [None]
  - Chest discomfort [None]
  - Muscle tightness [None]
  - Dyspnoea [None]
  - Headache [None]

NARRATIVE: CASE EVENT DATE: 20180731
